FAERS Safety Report 10051574 (Version 7)
Quarter: 2016Q2

REPORT INFORMATION
  Report Type: Spontaneous
  Country: US (occurrence: US)
  Receive Date: 20140401
  Receipt Date: 20160630
  Transmission Date: 20160815
  Serious: Yes (Hospitalization, Other)
  Sender: FDA-Public Use
  Company Number: US-009507513-1403USA012833

PATIENT
  Sex: Female
  Weight: 78.46 kg

DRUGS (5)
  1. ALENDRONATE SODIUM. [Suspect]
     Active Substance: ALENDRONATE SODIUM
     Indication: OSTEOPOROSIS
     Dosage: 70 MG, UNK
     Route: 048
     Dates: start: 20080628, end: 201310
  2. CALCIUM (UNSPECIFIED) [Concomitant]
     Active Substance: CALCIUM
     Indication: PRODUCT USED FOR UNKNOWN INDICATION
     Dosage: 600 MG, UNK
     Route: 065
     Dates: start: 2001
  3. FOSAMAX [Suspect]
     Active Substance: ALENDRONATE SODIUM
     Indication: OSTEOPOROSIS
     Dosage: 70 MG, QW
     Route: 048
     Dates: start: 20011120, end: 20080505
  4. CHOLECALCIFEROL [Concomitant]
     Active Substance: CHOLECALCIFEROL
     Indication: PRODUCT USED FOR UNKNOWN INDICATION
     Dosage: 1000 IU, UNK
     Route: 065
     Dates: start: 2001
  5. OMEGA-3 MARINE TRIGLYCERIDES [Concomitant]
     Active Substance: FISH OIL
     Indication: PRODUCT USED FOR UNKNOWN INDICATION
     Dosage: 1000 MG, UNK
     Route: 065
     Dates: start: 2001

REACTIONS (16)
  - Hypothyroidism [Unknown]
  - Hypertension [Unknown]
  - Weight decreased [Unknown]
  - Osteopenia [Unknown]
  - Cataract [Unknown]
  - Urinary tract infection [Unknown]
  - Device loosening [Unknown]
  - Foot fracture [Unknown]
  - Femur fracture [Unknown]
  - Restless legs syndrome [Unknown]
  - Oestrogen deficiency [Unknown]
  - Benign gastric neoplasm [Unknown]
  - Femur fracture [Unknown]
  - Glaucoma [Unknown]
  - Fall [Unknown]
  - Tendonitis [Unknown]

NARRATIVE: CASE EVENT DATE: 2003
